FAERS Safety Report 4916131-3 (Version None)
Quarter: 2006Q1

REPORT INFORMATION
  Report Type: 
  Country: None (occurrence: None)
  Receive Date: 20060217
  Receipt Date: 20050125
  Transmission Date: 20060701
  Serious: Yes (Other)
  Sender: FDA-Public Use
  Company Number: US-MERCK-0501USA03966

PATIENT
  Sex: Male
  Weight: 73 kg

DRUGS (22)
  1. VIOXX [Suspect]
     Indication: PAIN
     Route: 048
     Dates: start: 20021228, end: 20031101
  2. VIOXX [Suspect]
     Route: 048
     Dates: start: 20021223, end: 20021227
  3. VIOXX [Suspect]
     Route: 048
     Dates: start: 19930101, end: 19950101
  4. VIOXX [Suspect]
     Indication: INFLAMMATION
     Route: 048
     Dates: start: 20021228, end: 20031101
  5. VIOXX [Suspect]
     Route: 048
     Dates: start: 20021223, end: 20021227
  6. VIOXX [Suspect]
     Route: 048
     Dates: start: 19930101, end: 19950101
  7. ULTRAM [Concomitant]
     Route: 065
  8. MS CONTIN [Concomitant]
     Route: 065
  9. MORPHINE [Concomitant]
     Route: 065
  10. NORTRIPTYLINE HYDROCHLORIDE [Concomitant]
     Route: 065
  11. LIPITOR [Concomitant]
     Route: 065
  12. PREDNISONE [Concomitant]
     Route: 065
  13. ALBUTEROL [Concomitant]
     Route: 065
  14. ATROVENT [Concomitant]
     Route: 065
  15. PAXIL [Concomitant]
     Route: 065
  16. VICODIN [Concomitant]
     Route: 065
  17. AMOXICILLIN [Concomitant]
     Route: 065
  18. RESTORIL [Concomitant]
     Route: 065
  19. PENICILLIN (UNSPECIFIED) [Concomitant]
     Route: 065
  20. [THERAPY UNSPECIFIED] [Concomitant]
     Route: 065
  21. OXYCONTIN [Concomitant]
     Route: 065
  22. FENTANYL [Concomitant]
     Route: 065

REACTIONS (13)
  - ABDOMINAL PAIN UPPER [None]
  - BENIGN PROSTATIC HYPERPLASIA [None]
  - CELLULITIS [None]
  - CERVICOBRACHIAL SYNDROME [None]
  - CONSTIPATION [None]
  - DRUG INEFFECTIVE [None]
  - HIDRADENITIS [None]
  - HYPERTENSION [None]
  - MYOCARDIAL INFARCTION [None]
  - PEPTIC ULCER [None]
  - PERIORBITAL HAEMATOMA [None]
  - SPINAL DISORDER [None]
  - VISUAL DISTURBANCE [None]
